FAERS Safety Report 12873923 (Version 3)
Quarter: 2018Q1

REPORT INFORMATION
  Report Type: Spontaneous
  Country: JP (occurrence: JP)
  Receive Date: 20161021
  Receipt Date: 20180124
  Transmission Date: 20180508
  Serious: Yes (Hospitalization, Other)
  Sender: FDA-Public Use
  Company Number: JP-GLAXOSMITHKLINE-JP2016JPN152318

PATIENT
  Age: 19 Year
  Sex: Female

DRUGS (2)
  1. EPOPROSTENOL. [Suspect]
     Active Substance: EPOPROSTENOL
     Dosage: NANOGRAM PER KILOGRAM PER MINUTE 37 NG/KG
     Route: 042
  2. EPOPROSTENOL. [Suspect]
     Active Substance: EPOPROSTENOL
     Indication: UNEVALUABLE THERAPY
     Dosage: UNK
     Route: 042

REACTIONS (2)
  - Haemoptysis [Recovered/Resolved]
  - Thrombocytopenia [Recovering/Resolving]
